FAERS Safety Report 23394238 (Version 1)
Quarter: 2024Q1

REPORT INFORMATION
  Report Type: Spontaneous
  Country: US (occurrence: US)
  Receive Date: 20240111
  Receipt Date: 20240111
  Transmission Date: 20240410
  Serious: No
  Sender: FDA-Public Use
  Company Number: US-009507513-2401USA005754

PATIENT
  Sex: Female

DRUGS (3)
  1. TEMODAR [Suspect]
     Active Substance: TEMOZOLOMIDE
     Indication: Neurofibrosarcoma
     Route: 048
  2. IRINOTECAN [Concomitant]
     Active Substance: IRINOTECAN
     Indication: Neurofibrosarcoma
  3. PAZOPANIB [Concomitant]
     Active Substance: PAZOPANIB
     Indication: Neurofibrosarcoma

REACTIONS (1)
  - Product use in unapproved indication [Unknown]
